FAERS Safety Report 14011959 (Version 1)
Quarter: 2017Q3

REPORT INFORMATION
  Report Type: Report from Study
  Country: US (occurrence: US)
  Receive Date: 20170926
  Receipt Date: 20170926
  Transmission Date: 20171128
  Serious: Yes (Other)
  Sender: FDA-Public Use
  Company Number: US-BAYER-2017-159847

PATIENT
  Age: 69 Year
  Sex: Female

DRUGS (2)
  1. STIVARGA [Suspect]
     Active Substance: REGORAFENIB
     Indication: COLON CANCER
     Dosage: 160 MG, QD FOR 21 DAYS OUT OF 28 DAYS
     Route: 048
     Dates: start: 20170811, end: 2017
  2. STIVARGA [Suspect]
     Active Substance: REGORAFENIB
     Indication: RECTOSIGMOID CANCER

REACTIONS (4)
  - Fatigue [Not Recovered/Not Resolved]
  - Pain in extremity [None]
  - Blood pressure increased [Recovered/Resolved]
  - Gait disturbance [None]

NARRATIVE: CASE EVENT DATE: 2017
